FAERS Safety Report 5744239-1 (Version None)
Quarter: 2008Q2

REPORT INFORMATION
  Report Type: 
  Country: None (occurrence: None)
  Receive Date: 20080520
  Receipt Date: 20080514
  Transmission Date: 20081010
  Serious: Yes (Other)
  Sender: FDA-Public Use
  Company Number: JP-AVENTIS-200811479JP

PATIENT
  Age: 96 Year
  Sex: Male

DRUGS (7)
  1. LASIX [Suspect]
     Route: 048
  2. FAMOTIDINE [Suspect]
  3. HUSTAZOL [Concomitant]
  4. HOMOCLOMIN                         /00357801/ [Concomitant]
  5. MAGMITT [Concomitant]
  6. MUCOSOLVAN [Concomitant]
  7. NITOROL [Concomitant]

REACTIONS (1)
  - HALLUCINATION, VISUAL [None]
